FAERS Safety Report 24263743 (Version 1)
Quarter: 2024Q3

REPORT INFORMATION
  Report Type: Spontaneous
  Country: JP (occurrence: JP)
  Receive Date: 20240829
  Receipt Date: 20240829
  Transmission Date: 20241017
  Serious: Yes (Hospitalization)
  Sender: PFIZER
  Company Number: JP-PFIZER INC-202400243659

PATIENT

DRUGS (2)
  1. AZITHROMYCIN DIHYDRATE [Suspect]
     Active Substance: AZITHROMYCIN DIHYDRATE
     Indication: Infectious pleural effusion
     Dosage: UNK
     Route: 048
  2. AZITHROMYCIN DIHYDRATE [Suspect]
     Active Substance: AZITHROMYCIN DIHYDRATE
     Indication: Pneumonia

REACTIONS (3)
  - Pneumonia [Unknown]
  - Infectious pleural effusion [Unknown]
  - Condition aggravated [Unknown]
